FAERS Safety Report 4306999-6 (Version None)
Quarter: 2004Q1

REPORT INFORMATION
  Report Type: 
  Country: None (occurrence: None)
  Receive Date: 20040225
  Receipt Date: 20040217
  Transmission Date: 20041129
  Serious: Yes (Hospitalization)
  Sender: FDA-Public Use
  Company Number: FR-JNJFOC-20040203678

PATIENT
  Age: 55 Year
  Sex: Male

DRUGS (11)
  1. TRAMADOL HCL [Suspect]
     Indication: DRUG USE FOR UNKNOWN INDICATION
     Dosage: 50 MG, ORAL 3
     Route: 048
  2. BIPROFENID (BISMUTH SUBCARBONATE) [Suspect]
     Indication: DRUG USE FOR UNKNOWN INDICATION
     Dosage: ORAL
     Route: 048
  3. AMITRIPTYLINE HYDROCHLORIDE [Suspect]
     Indication: DRUG USE FOR UNKNOWN INDICATION
     Dosage: ORAL
     Route: 048
  4. FRAXIPARINE (HEPARIN-FRACTION, CALCIUM SALT) UNKNOWN [Suspect]
     Indication: DRUG USE FOR UNKNOWN INDICATION
     Dosage: SUBCUTANEOUS
     Route: 058
  5. TENORMIN [Suspect]
     Indication: DRUG USE FOR UNKNOWN INDICATION
     Dosage: ORAL
     Route: 048
  6. OMEPRAZOLE [Suspect]
     Indication: DRUG USE FOR UNKNOWN INDICATION
     Dosage: ORAL
  7. STILNOX (ZOLPIDEM) [Concomitant]
  8. MYOLASTAN (TETRAZEPAM) [Concomitant]
  9. STABLON (TIANEPTINE) [Concomitant]
  10. PRAVASTATIN SODIUM [Concomitant]
  11. GINGKO BILOBA (GINKGO BILOBA) [Concomitant]

REACTIONS (2)
  - DRUG INTERACTION [None]
  - EOSINOPHILIA [None]
